FAERS Safety Report 6571175-3 (Version None)
Quarter: 2010Q1

REPORT INFORMATION
  Report Type: 
  Country: None (occurrence: None)
  Receive Date: 20100204
  Receipt Date: 20100128
  Transmission Date: 20100710
  Serious: Yes (Hospitalization)
  Sender: FDA-Public Use
  Company Number: JP-MERCK-0912USA00405

PATIENT
  Age: 71 Year
  Sex: Female
  Weight: 58 kg

DRUGS (4)
  1. SINGULAIR [Suspect]
     Indication: ASTHMA
     Route: 048
     Dates: start: 20091124, end: 20091127
  2. CISDYNE [Suspect]
     Indication: ASTHMA
     Route: 048
     Dates: start: 20091124, end: 20091125
  3. ALVESCO [Concomitant]
     Indication: ASTHMA
     Dosage: DOSE NOT CHANGED
     Route: 055
     Dates: start: 20091124
  4. PREDONINE [Concomitant]
     Indication: ASTHMA
     Route: 048
     Dates: start: 20091124, end: 20091127

REACTIONS (1)
  - DRUG ERUPTION [None]
